FAERS Safety Report 13465342 (Version 1)
Quarter: 2017Q2

REPORT INFORMATION
  Report Type: Spontaneous
  Country: US (occurrence: US)
  Receive Date: 20170421
  Receipt Date: 20170421
  Transmission Date: 20170830
  Serious: Yes (Other)
  Sender: FDA-Public Use
  Company Number: US-ROCHE-1921736

PATIENT
  Sex: Female

DRUGS (5)
  1. EYLEA [Suspect]
     Active Substance: AFLIBERCEPT
     Indication: DIABETIC RETINAL OEDEMA
     Route: 031
     Dates: start: 20161228
  2. AVASTIN [Suspect]
     Active Substance: BEVACIZUMAB
     Indication: PRODUCT USED FOR UNKNOWN INDICATION
     Route: 065
     Dates: start: 2016
  3. PRED FORTE [Concomitant]
     Active Substance: PREDNISOLONE ACETATE
  4. LIDOCAINE. [Concomitant]
     Active Substance: LIDOCAINE
     Route: 057
  5. EYLEA [Suspect]
     Active Substance: AFLIBERCEPT
     Indication: DIABETIC RETINOPATHY
     Dosage: 2MG/0.05 ML
     Route: 031
     Dates: start: 20161212, end: 20161212

REACTIONS (2)
  - Eye swelling [Unknown]
  - Retinal detachment [Unknown]

NARRATIVE: CASE EVENT DATE: 20161212
